FAERS Safety Report 6661833-4 (Version None)
Quarter: 2010Q1

REPORT INFORMATION
  Report Type: 
  Country: None (occurrence: None)
  Receive Date: 20100331
  Receipt Date: 20090724
  Transmission Date: 20100710
  Serious: Yes (Other)
  Sender: FDA-Public Use
  Company Number: US-BRISTOL-MYERS SQUIBB COMPANY-14715387

PATIENT
  Age: 55 Year
  Sex: Male
  Weight: 90 kg

DRUGS (8)
  1. ERBITUX [Suspect]
     Indication: HEAD AND NECK CANCER
     Route: 042
     Dates: start: 20090723, end: 20090723
  2. LOTREL [Concomitant]
     Dosage: 1 DF=5-20MG
     Route: 048
  3. VYTORIN [Concomitant]
     Dosage: 1 DF=10-20MG
     Route: 048
  4. INDOCIN [Concomitant]
  5. OXYCODONE HCL [Concomitant]
     Route: 048
  6. TOPROL-XL [Concomitant]
     Route: 048
  7. TYLENOL-500 [Concomitant]
     Indication: PREMEDICATION
     Route: 048
  8. BENADRYL [Concomitant]
     Indication: PREMEDICATION
     Route: 042

REACTIONS (1)
  - INFUSION RELATED REACTION [None]
